FAERS Safety Report 19381704 (Version 6)
Quarter: 2021Q4

REPORT INFORMATION
  Report Type: Report from Study
  Country: DE (occurrence: None)
  Receive Date: 20210607
  Receipt Date: 20211108
  Transmission Date: 20220303
  Serious: Yes (Hospitalization)
  Sender: FDA-Public Use
  Company Number: DE-ROCHE-2815118

PATIENT
  Age: 29 Year
  Sex: Female
  Weight: 60 kg

DRUGS (26)
  1. ATEZOLIZUMAB [Suspect]
     Active Substance: ATEZOLIZUMAB
     Indication: Triple negative breast cancer
     Dosage: LAST DOSE OF ATEZOLIZUMAB PRIOR TO SAE (SEVERE ADVERSE EVENT): 30/MAR/2021 AND 22/APR/2021
     Route: 041
     Dates: start: 20210318
  2. PACLITAXEL [Suspect]
     Active Substance: PACLITAXEL
     Indication: Triple negative breast cancer
     Dosage: LAST DOSE OF PACLITAXEL PRIOR TO SAE: 08/APR/2021 AND 06/MAY/2021
     Route: 042
     Dates: start: 20210330
  3. PACLITAXEL [Suspect]
     Active Substance: PACLITAXEL
     Dosage: LAST DOSE OF PACLITAXEL PRIOR TO SAE: 06/MAY/2021
     Route: 042
     Dates: start: 20210330
  4. CARBOPLATIN [Suspect]
     Active Substance: CARBOPLATIN
     Indication: Triple negative breast cancer
     Dosage: LAST DOSE OF CARBOPLATIN PRIOR TO SAE: 08/APR/2021 AND 06/MAY/2021
     Route: 042
     Dates: start: 20210330
  5. CARBOPLATIN [Suspect]
     Active Substance: CARBOPLATIN
     Dosage: LAST DOSE OF CARBOPLATIN PRIOR TO SAE: 06/MAY/2021
     Route: 042
     Dates: start: 20210330
  6. PFIZER-BIONTECH COVID-19 VACCINE [Suspect]
     Active Substance: TOZINAMERAN
     Indication: Product used for unknown indication
     Route: 065
     Dates: start: 20210401, end: 20210401
  7. PFIZER-BIONTECH COVID-19 VACCINE [Suspect]
     Active Substance: TOZINAMERAN
     Route: 065
     Dates: start: 20210513, end: 20210513
  8. ZOLADEX [Concomitant]
     Active Substance: GOSERELIN ACETATE
     Dates: start: 20210309
  9. CERTOPARIN SODIUM [Concomitant]
     Active Substance: CERTOPARIN SODIUM
     Dosage: 30.000 IE DOSE
     Dates: start: 20210409, end: 20210411
  10. MINOCYCLINE HYDROCHLORIDE [Concomitant]
     Active Substance: MINOCYCLINE HYDROCHLORIDE
     Dates: start: 20210409, end: 20210411
  11. APREPITANT [Concomitant]
     Active Substance: APREPITANT
     Dates: start: 20210409, end: 20210411
  12. ZOFRAN [Concomitant]
     Active Substance: ONDANSETRON HYDROCHLORIDE
     Dates: start: 20210409, end: 20210410
  13. ZOFRAN [Concomitant]
     Active Substance: ONDANSETRON HYDROCHLORIDE
     Dates: start: 20210520, end: 20210523
  14. DEXAMETHASONE [Concomitant]
     Active Substance: DEXAMETHASONE
     Dates: start: 20210408
  15. DIMETHINDENE [Concomitant]
     Active Substance: DIMETHINDENE
     Dosage: 1 AMP DOSE
     Dates: start: 20210408
  16. CIMETIDIN [Concomitant]
     Dates: start: 20210408
  17. SODIUM CHLORIDE [Concomitant]
     Active Substance: SODIUM CHLORIDE
     Dates: start: 20210408
  18. ALOXI [Concomitant]
     Active Substance: PALONOSETRON HYDROCHLORIDE
     Dosage: 1 AMP DOSE
     Dates: start: 20210408
  19. EMEND [Concomitant]
     Active Substance: APREPITANT
     Dosage: 125/80/80 MG
     Dates: start: 20210408
  20. PANTOPRAZOLE SODIUM [Concomitant]
     Active Substance: PANTOPRAZOLE SODIUM
     Dates: start: 20210415
  21. CLINDAMYCIN [Concomitant]
     Active Substance: CLINDAMYCIN
     Dates: start: 20210506, end: 20210509
  22. CALCIUM CHLORIDE\MAGNESIUM CHLORIDE\POTASSIUM CHLORIDE\SODIUM ACETATE\ [Concomitant]
     Active Substance: CALCIUM CHLORIDE\MAGNESIUM CHLORIDE\POTASSIUM CHLORIDE\SODIUM ACETATE\SODIUM CHLORIDE
     Dates: start: 20210506, end: 20210509
  23. HUMAN RED BLOOD CELL [Concomitant]
     Active Substance: HUMAN RED BLOOD CELL
     Dates: start: 20210506, end: 20210506
  24. ACETAMINOPHEN [Concomitant]
     Active Substance: ACETAMINOPHEN
     Dates: start: 20210520, end: 20210523
  25. FERROUS GLYCINE SULFATE [Concomitant]
     Active Substance: FERROUS GLYCINE SULFATE
     Dosage: 15 DROPS
     Dates: start: 20210515
  26. NEULASTA [Concomitant]
     Active Substance: PEGFILGRASTIM
     Dates: start: 20210410, end: 20210410

REACTIONS (3)
  - Pyrexia [Recovered/Resolved]
  - Hypersensitivity [Recovered/Resolved]
  - Hypersensitivity [Recovered/Resolved]

NARRATIVE: CASE EVENT DATE: 20210408
